FAERS Safety Report 5473092-9 (Version None)
Quarter: 2007Q4

REPORT INFORMATION
  Report Type: 
  Country: None (occurrence: None)
  Receive Date: 20071001
  Receipt Date: 20070508
  Transmission Date: 20080405
  Serious: No
  Sender: FDA-Public Use
  Company Number: US-ASTRAZENECA-2007UW07028

PATIENT
  Age: 37 Year
  Sex: Female

DRUGS (3)
  1. ARIMIDEX [Suspect]
     Indication: OESTROGEN REPLACEMENT THERAPY
  2. ARIMIDEX [Suspect]
     Indication: BREAST CANCER
  3. VITAMINS [Concomitant]

REACTIONS (3)
  - ARTHRALGIA [None]
  - ILL-DEFINED DISORDER [None]
  - PAIN [None]
